FAERS Safety Report 5883272-6 (Version None)
Quarter: 2008Q3

REPORT INFORMATION
  Report Type: 
  Country: None (occurrence: None)
  Receive Date: 20080915
  Receipt Date: 20080911
  Transmission Date: 20090109
  Serious: Yes (Hospitalization)
  Sender: FDA-Public Use
  Company Number: IT-BRISTOL-MYERS SQUIBB COMPANY-14333066

PATIENT
  Age: 39 Year
  Sex: Female

DRUGS (3)
  1. REYATAZ [Suspect]
     Route: 048
     Dates: start: 20070101, end: 20080101
  2. NORVIR [Suspect]
     Dates: start: 20070101, end: 20080101
  3. TRUVADA [Suspect]
     Dates: start: 20070101, end: 20080101

REACTIONS (1)
  - HAEMOLYTIC ANAEMIA [None]
